FAERS Safety Report 9666655 (Version 4)
Quarter: 2013Q4

REPORT INFORMATION
  Report Type: Report from Study
  Country: US (occurrence: US)
  Receive Date: 20131104
  Receipt Date: 20131206
  Transmission Date: 20140711
  Serious: Yes (Hospitalization)
  Sender: FDA-Public Use
  Company Number: US-TAKEDA-2013TUS001566

PATIENT
  Age: 59 Year
  Sex: Female
  Weight: 116.4 kg

DRUGS (15)
  1. FEBUXOSTAT [Suspect]
     Indication: HYPERURICAEMIA
     Dosage: 40 MG, QD
     Route: 048
     Dates: start: 20130806, end: 20131007
  2. FEBUXOSTAT [Suspect]
     Dosage: 40 MG, QD
     Route: 048
     Dates: start: 20131124
  3. NAPROXEN [Suspect]
     Indication: GOUT
     Dosage: 250 MG, BID
     Dates: start: 20130806, end: 20131108
  4. ASPIRIN [Suspect]
     Indication: CARDIOVASCULAR EVENT PROPHYLAXIS
     Dosage: 325 MG, QD
     Route: 048
     Dates: start: 2008, end: 20131007
  5. CLONIDINE HCL [Concomitant]
     Indication: HYPERTENSION
     Dosage: 0.4 MG, BID
     Route: 048
     Dates: start: 201212
  6. FUROSEMIDE [Concomitant]
     Indication: HYPERTENSION
     Dosage: 20 MG, QD
     Route: 048
     Dates: start: 201206
  7. HYDROCHLOROTHIAZIDE [Concomitant]
     Indication: HYPERTENSION
     Dosage: 20 MG, QD
     Route: 048
     Dates: start: 201305
  8. LISINOPRIL [Concomitant]
     Indication: HYPERTENSION
     Dosage: 40 MG, QD
     Route: 048
     Dates: start: 1992
  9. NORVASC [Concomitant]
     Indication: HYPERTENSION
     Dosage: 10 MG, QD
     Route: 048
     Dates: start: 1992
  10. LANTUS [Concomitant]
     Indication: TYPE 2 DIABETES MELLITUS
     Dosage: 58 IU, QHS
     Route: 058
     Dates: start: 201306, end: 20131007
  11. METFORMIN [Concomitant]
     Indication: TYPE 2 DIABETES MELLITUS
     Dosage: 500 MG, BID
     Route: 048
     Dates: start: 1974
  12. PAXIL [Concomitant]
     Indication: DEPRESSION
     Dosage: 20 MG, QD
     Route: 048
     Dates: start: 2007
  13. PRAVASTATIN [Concomitant]
     Indication: DYSLIPIDAEMIA
     Dosage: 80 MG, QD
     Route: 048
     Dates: start: 2007
  14. TRAZODONE [Concomitant]
     Indication: INSOMNIA
     Dosage: 50 MG, QHS PRN
     Route: 048
     Dates: start: 20130123
  15. LANSOPRAZOLE [Concomitant]
     Indication: PROPHYLAXIS AGAINST GASTROINTESTINAL ULCER
     Dosage: 15 MG, QD
     Dates: start: 20130806, end: 20131108

REACTIONS (1)
  - Rectal haemorrhage [Recovered/Resolved]
